FAERS Safety Report 10228210 (Version 1)
Quarter: 2014Q2

REPORT INFORMATION
  Report Type: Spontaneous
  Country: US (occurrence: US)
  Receive Date: 20140610
  Receipt Date: 20140610
  Transmission Date: 20141212
  Serious: Yes (Life-Threatening, Hospitalization, Other)
  Sender: FDA-Public Use
  Company Number: US-ACTAVIS-2014-12641

PATIENT
  Age: 15 Year
  Sex: Female

DRUGS (2)
  1. CARBAMAZEPINE (AELLC) [Suspect]
     Indication: BIPOLAR DISORDER
     Dosage: UNK
     Route: 065
  2. VALPROIC ACID (UNKNOWN) [Suspect]
     Indication: BIPOLAR DISORDER
     Dosage: UNK
     Route: 065

REACTIONS (3)
  - Drug reaction with eosinophilia and systemic symptoms [Recovering/Resolving]
  - Cross sensitivity reaction [Unknown]
  - Rash macular [Unknown]
